FAERS Safety Report 14968236 (Version 1)
Quarter: 2018Q2

REPORT INFORMATION
  Report Type: Spontaneous
  Country: US (occurrence: US)
  Receive Date: 20180604
  Receipt Date: 20180604
  Transmission Date: 20180711
  Serious: No
  Sender: FDA-Public Use
  Company Number: US-GLAXOSMITHKLINE-US2018096032

PATIENT
  Age: 69 Year
  Sex: Female

DRUGS (8)
  1. SPIRIVA [Suspect]
     Active Substance: TIOTROPIUM BROMIDE MONOHYDRATE
     Indication: PRODUCT USED FOR UNKNOWN INDICATION
     Dosage: UNK
     Dates: end: 201805
  2. ANORO ELLIPTA [Suspect]
     Active Substance: UMECLIDINIUM BROMIDE\VILANTEROL TRIFENATATE
     Indication: CHRONIC OBSTRUCTIVE PULMONARY DISEASE
     Dosage: 1 PUFF(S), QD
     Route: 055
     Dates: start: 20180517, end: 20180526
  3. HYDROCODONE [Concomitant]
     Active Substance: HYDROCODONE
  4. TYLENOL [Concomitant]
     Active Substance: ACETAMINOPHEN
  5. ADVIL [Concomitant]
     Active Substance: IBUPROFEN
  6. ATENOLOL. [Concomitant]
     Active Substance: ATENOLOL
  7. LIPITOR [Concomitant]
     Active Substance: ATORVASTATIN CALCIUM
  8. CALCIUM [Concomitant]
     Active Substance: CALCIUM

REACTIONS (13)
  - Tremor [Recovering/Resolving]
  - Vision blurred [Recovering/Resolving]
  - Eyelid oedema [Recovering/Resolving]
  - Dry eye [Recovering/Resolving]
  - Dry skin [Recovering/Resolving]
  - Neck pain [Recovering/Resolving]
  - Musculoskeletal stiffness [Recovering/Resolving]
  - Nervousness [Recovering/Resolving]
  - Muscle spasms [Recovering/Resolving]
  - Rash [Recovering/Resolving]
  - Pollakiuria [Recovering/Resolving]
  - Pain in extremity [Recovering/Resolving]
  - Arthralgia [Recovering/Resolving]

NARRATIVE: CASE EVENT DATE: 20180523
